FAERS Safety Report 14334626 (Version 1)
Quarter: 2017Q4

REPORT INFORMATION
  Report Type: Spontaneous
  Country: IT (occurrence: IT)
  Receive Date: 20171228
  Receipt Date: 20171228
  Transmission Date: 20180321
  Serious: Yes (Hospitalization)
  Sender: FDA-Public Use
  Company Number: IT-ASTRAZENECA-2017SF30734

PATIENT
  Age: 66 Year
  Sex: Male

DRUGS (7)
  1. OMEPRAZOL [Suspect]
     Active Substance: OMEPRAZOLE
     Dosage: 20.0MG UNKNOWN
     Route: 048
  2. METFORMIN HYDROCHLORIDE. [Suspect]
     Active Substance: METFORMIN HYDROCHLORIDE
     Dosage: 3000MG, NON AZ
     Route: 048
  3. UROREC [Concomitant]
     Active Substance: SILODOSIN
     Dosage: 1.0DF UNKNOWN
     Route: 048
  4. FOSIPRES [Suspect]
     Active Substance: FOSINOPRIL
     Indication: CORONARY ARTERY DISEASE
     Route: 048
     Dates: start: 20120301, end: 20171012
  5. CARVEDILOL. [Suspect]
     Active Substance: CARVEDILOL
     Indication: CORONARY ARTERY DISEASE
     Route: 048
     Dates: start: 20150301, end: 20171012
  6. CARDIOASPIRIN [Suspect]
     Active Substance: ASPIRIN
     Dosage: 1.0DF UNKNOWN
     Route: 048
  7. CRESTOR [Suspect]
     Active Substance: ROSUVASTATIN CALCIUM
     Dosage: 1.0DF UNKNOWN
     Route: 048

REACTIONS (4)
  - Abdominal pain upper [Recovered/Resolved]
  - Hypotension [Recovered/Resolved]
  - Abdominal pain lower [Recovered/Resolved]
  - Bradycardia [Recovered/Resolved]

NARRATIVE: CASE EVENT DATE: 20171012
